FAERS Safety Report 20748888 (Version 1)
Quarter: 2022Q2

REPORT INFORMATION
  Report Type: Other
  Country: CA (occurrence: CA)
  Receive Date: 20220426
  Receipt Date: 20220426
  Transmission Date: 20220721
  Serious: Yes (Other)
  Sender: FDA-Public Use
  Company Number: CA-CELLTRION INC.-2022CA004875

PATIENT

DRUGS (11)
  1. RITUXIMAB [Suspect]
     Active Substance: RITUXIMAB
     Indication: Anti-neutrophil cytoplasmic antibody positive vasculitis
     Dosage: 500.0 MILLIGRAM
     Route: 042
  2. VAXZEVRIA [Suspect]
     Active Substance: AZD-1222
     Indication: Product used for unknown indication
     Dosage: VAXZEVRIA VIAL CONTAINS 10 DOSES OF 0.5ML
     Route: 030
  3. ARANESP [Concomitant]
     Active Substance: DARBEPOETIN ALFA
  4. BENADRYL [Concomitant]
     Active Substance: DIPHENHYDRAMINE HYDROCHLORIDE
     Dosage: 50.0 MILLIGRAM
     Route: 048
  5. CALCIUM [Concomitant]
     Active Substance: CALCIUM
  6. IRBESARTAN [Concomitant]
     Active Substance: IRBESARTAN
     Route: 048
  7. PREDNISONE [Concomitant]
     Active Substance: PREDNISONE
  8. RENVELA [Concomitant]
     Active Substance: SEVELAMER CARBONATE
     Dosage: POWDER FOR SUSPENSION ORAL
     Route: 048
  9. SOLU-MEDROL [Concomitant]
     Active Substance: METHYLPREDNISOLONE SODIUM SUCCINATE
     Dosage: 100.0 MILLIGRAM
  10. TOZINAMERAN [Concomitant]
     Active Substance: TOZINAMERAN
  11. TYLENOL [Concomitant]
     Active Substance: ACETAMINOPHEN
     Dosage: 650.0 MILLIGRAM
     Route: 048

REACTIONS (1)
  - Intestinal haemorrhage [Unknown]
